FAERS Safety Report 15238598 (Version 1)
Quarter: 2018Q3

REPORT INFORMATION
  Report Type: Spontaneous
  Country: US (occurrence: US)
  Receive Date: 20180803
  Receipt Date: 20180803
  Transmission Date: 20181010
  Serious: Yes (Other)
  Sender: FDA-Public Use
  Company Number: US-ELI_LILLY_AND_COMPANY-US201807014775

PATIENT
  Sex: Male

DRUGS (4)
  1. CYRAMZA [Suspect]
     Active Substance: RAMUCIRUMAB
     Dosage: UNK, UNKNOWN
     Route: 065
     Dates: start: 20180514, end: 20180709
  2. CYRAMZA [Suspect]
     Active Substance: RAMUCIRUMAB
     Dosage: UNK, UNKNOWN
     Route: 065
     Dates: start: 201801, end: 201803
  3. CYRAMZA [Suspect]
     Active Substance: RAMUCIRUMAB
     Indication: OESOPHAGEAL CARCINOMA
     Dosage: UNK, UNKNOWN
     Route: 065
     Dates: start: 201706, end: 201801
  4. TAXOL [Concomitant]
     Active Substance: PACLITAXEL
     Indication: OESOPHAGEAL CARCINOMA
     Dosage: UNK, UNKNOWN
     Route: 065
     Dates: start: 201706, end: 201801

REACTIONS (3)
  - Arthralgia [Not Recovered/Not Resolved]
  - Joint destruction [Unknown]
  - Joint swelling [Not Recovered/Not Resolved]

NARRATIVE: CASE EVENT DATE: 2018
